FAERS Safety Report 21542261 (Version 5)
Quarter: 2024Q3

REPORT INFORMATION
  Report Type: Spontaneous
  Country: US (occurrence: US)
  Receive Date: 20221102
  Receipt Date: 20240926
  Transmission Date: 20241017
  Serious: Yes (Other)
  Sender: PFIZER
  Company Number: US-PFIZER INC-PV202200094149

PATIENT
  Age: 58 Year
  Sex: Male

DRUGS (1)
  1. XELJANZ XR [Suspect]
     Active Substance: TOFACITINIB CITRATE
     Dosage: 11 MG

REACTIONS (6)
  - Arthritis [Unknown]
  - Gait disturbance [Unknown]
  - Immobile [Unknown]
  - Pain [Not Recovered/Not Resolved]
  - Mental disorder [Unknown]
  - Deformity [Unknown]

NARRATIVE: CASE EVENT DATE: 20240101
